FAERS Safety Report 25540747 (Version 2)
Quarter: 2025Q3

REPORT INFORMATION
  Report Type: Spontaneous
  Country: EU (occurrence: EU)
  Receive Date: 20250710
  Receipt Date: 20250815
  Transmission Date: 20251020
  Serious: Yes (Other)
  Sender: NOVARTIS
  Company Number: EU-002147023-NVSC2025PL106429

PATIENT
  Age: 20 Year
  Sex: Female

DRUGS (2)
  1. CYCLOSPORINE [Suspect]
     Active Substance: CYCLOSPORINE
     Indication: Dermatitis atopic
     Dosage: 3 MG/KG BODY WEIGHT/DAY
     Route: 065
  2. TRALOKINUMAB [Concomitant]
     Active Substance: TRALOKINUMAB
     Indication: Dermatitis atopic
     Route: 065

REACTIONS (3)
  - Eczema herpeticum [Recovering/Resolving]
  - Paraesthesia [Recovering/Resolving]
  - Abdominal pain [Recovering/Resolving]
